FAERS Safety Report 6238767-2 (Version None)
Quarter: 2009Q2

REPORT INFORMATION
  Report Type: 
  Country: None (occurrence: None)
  Receive Date: 20090617
  Receipt Date: 20090617
  Transmission Date: 20091009
  Serious: No
  Sender: FDA-Public Use
  Company Number: None

PATIENT
  Age: 44 Year
  Sex: Male
  Weight: 86.1834 kg

DRUGS (2)
  1. ZICAM NASAL SPRAY GEL [Suspect]
     Indication: NASAL CONGESTION
     Dosage: AS DIRECTED ONE DOSE ONCE NASAL
     Route: 045
     Dates: start: 20030217, end: 20030217
  2. ZICAM NASAL SPRAY GEL [Suspect]
     Indication: NASOPHARYNGITIS
     Dosage: AS DIRECTED ONE DOSE ONCE NASAL
     Route: 045
     Dates: start: 20030217, end: 20030217

REACTIONS (1)
  - ANOSMIA [None]
